FAERS Safety Report 6313646-0 (Version None)
Quarter: 2009Q3

REPORT INFORMATION
  Report Type: 
  Country: None (occurrence: None)
  Receive Date: 20090814
  Receipt Date: 20090620
  Transmission Date: 20100115
  Serious: Yes (Life-Threatening, Hospitalization, Disabling, Other)
  Sender: FDA-Public Use
  Company Number: 2009EU002877

PATIENT
  Age: 69 Year
  Sex: Male

DRUGS (52)
  1. FK506(TACROLIMUS CAPSULES)(TACROLIMUS) [Suspect]
     Indication: RENAL TRANSPLANT
     Dosage: 0.5 MG, BID, ORAL
     Route: 048
     Dates: start: 20040402
  2. MYCOPHENOLATE MOFETIL [Suspect]
     Indication: RENAL TRANSPLANT
     Dosage: 1 G, BID, ORAL ; 500 MG, BID, ORAL
     Route: 048
     Dates: start: 20030709, end: 20031126
  3. MYCOPHENOLATE MOFETIL [Suspect]
     Indication: RENAL TRANSPLANT
     Dosage: 1 G, BID, ORAL ; 500 MG, BID, ORAL
     Route: 048
     Dates: start: 20030716
  4. DACLIZUMAB(DACLIZUMAB) [Suspect]
     Indication: RENAL TRANSPLANT
     Dosage: 140 MG, TOTAL DOSE, IV NOS
     Route: 042
     Dates: start: 20030709
  5. SIROLIMUS(SIROLIMUS) [Suspect]
     Indication: RENAL TRANSPLANT
     Dosage: 1 MG, UID/QD, ORAL
     Route: 048
     Dates: start: 20030709, end: 20040331
  6. PREDNISOLONE [Suspect]
     Indication: RENAL TRANSPLANT
     Dosage: 250 MG, TID, IV NOS
     Route: 042
     Dates: start: 20030709, end: 20030710
  7. PREDNISOLONE [Suspect]
     Indication: RENAL TRANSPLANT
     Dosage: 75 MG, TOTAL DOSE, ORAL
     Route: 048
     Dates: start: 20030710
  8. PREDNISOLONE [Suspect]
     Indication: RENAL TRANSPLANT
     Dosage: 750 MG, TOTAL DOSE, NASAL
     Route: 045
     Dates: start: 20030709
  9. ACETYLSALICYLIC ACID SRT [Suspect]
     Indication: RENAL TRANSPLANT
     Dosage: 100 MG, UID/QD, ORAL
     Route: 048
     Dates: start: 20030715
  10. PLAVIX [Suspect]
     Indication: RENAL TRANSPLANT
     Dosage: 75 MG, UID/QD, ORAL
     Route: 048
     Dates: start: 20030712, end: 20030716
  11. MAGNESIOCARD (MAGNESIUM ASPARTATE HYDROCHLORIDE) [Concomitant]
  12. AMPICILLIN AND SULBACTAM [Concomitant]
  13. SULFAMETHOXAZOLE AND TRIMETHOPRIM [Concomitant]
  14. NORVASC [Concomitant]
  15. AMPHOTERICIN B [Concomitant]
  16. CARVEDILOL [Concomitant]
  17. PRAVASTATIN SODIUM [Concomitant]
  18. CLORAZEPATE DIPOTASSIUM [Concomitant]
  19. LACTULOSE [Concomitant]
  20. MAALOXAN [Concomitant]
  21. AMIODARONE HYDROCHLORIDE [Concomitant]
  22. PERLINGANT (GLYCERYL TRINITRATE) [Concomitant]
  23. EBRANTIL (URAPIDIL) [Concomitant]
  24. HEPARIN [Concomitant]
  25. ACTRAPHANE (INSULIN HUMAN, INSULIN HUMAN INJECTION, ISOPHANE) [Concomitant]
  26. CORVATON (MOLSIDOMINE) [Concomitant]
  27. ISOKET RETARD (ISOSORBIDE DINITRATE) [Concomitant]
  28. SPASMEX (TROSPIUM CHLORIDE) [Concomitant]
  29. ACETYLCYSTEINE [Concomitant]
  30. SALVIATHYMOL (PHENYL SALICYLATE, HERBAL EXTRACT NOS) [Concomitant]
  31. RANITIDINE HCL [Concomitant]
  32. EPOETIN NOS (EPOETIN NOS) [Concomitant]
  33. ACTONEL [Concomitant]
  34. ROCALTROL [Concomitant]
  35. PANTOPRAZOLE SODIUM [Concomitant]
  36. CIPROFLOXACIN [Concomitant]
  37. TAMSULOSIN HCL [Concomitant]
  38. ARANESP [Concomitant]
  39. ACTRAPID (INSULIN HUMAN) [Concomitant]
  40. LOCOL [Concomitant]
  41. AMPHOTERICIN B [Concomitant]
  42. AMLODIPIN (AMLODIPINE BESILATE) [Concomitant]
  43. ATROVENT [Concomitant]
  44. CEFOTIAM (CEFOTIAM HYDROCHLORIDE) [Concomitant]
  45. CEFTRIAXON (CEFTRIAXONE SODIUM) [Concomitant]
  46. CEFUROXIME [Concomitant]
  47. CLONDIN (CLONIDINE HYDROCHLORIDE) [Concomitant]
  48. METRONIDAZOLE [Concomitant]
  49. DOXAZOSIN (DOXAZOSIN MESILATE) [Concomitant]
  50. ENAHEXAL (ENALAPRILAT) [Concomitant]
  51. FERRO SANOL DUODENAL (FERROUS GLYCINE SULFATE) [Concomitant]
  52. FLUCONAZOLE [Concomitant]

REACTIONS (20)
  - ABDOMINAL HERNIA [None]
  - ACUTE ABDOMEN [None]
  - ACUTE CORONARY SYNDROME [None]
  - BLOOD CREATININE INCREASED [None]
  - DIVERTICULITIS [None]
  - ESCHERICHIA URINARY TRACT INFECTION [None]
  - GASTROINTESTINAL HAEMORRHAGE [None]
  - HAEMOGLOBIN DECREASED [None]
  - IMPAIRED HEALING [None]
  - INFECTION IN AN IMMUNOCOMPROMISED HOST [None]
  - INTESTINAL PROLAPSE [None]
  - LARYNGITIS BACTERIAL [None]
  - LARYNGITIS FUNGAL [None]
  - LOBAR PNEUMONIA [None]
  - LYMPHOCELE [None]
  - MUCOUS MEMBRANE DISORDER [None]
  - MYOCARDIAL INFARCTION [None]
  - OESOPHAGEAL CANDIDIASIS [None]
  - SUTURE RUPTURE [None]
  - URETERIC STENOSIS [None]
